FAERS Safety Report 9285560 (Version 1)
Quarter: 2013Q2

REPORT INFORMATION
  Report Type: Spontaneous
  Country: GB (occurrence: None)
  Receive Date: 20130507
  Receipt Date: 20130507
  Transmission Date: 20140414
  Serious: Yes (Other)
  Sender: FDA-Public Use
  Company Number: CL-486-2013

PATIENT
  Age: 41 Year
  Sex: Female

DRUGS (7)
  1. FLUCONAZOLE [Suspect]
     Indication: ORAL CANDIDIASIS
     Route: 048
  2. VINCRISTINE [Suspect]
     Indication: EWING^S SARCOMA
  3. PREDNISOLONE [Concomitant]
  4. IFOSFAMIDE [Concomitant]
  5. DOXORUBICIN [Concomitant]
  6. ETOPOSIDE [Concomitant]
  7. MIRTZAPIN [Concomitant]

REACTIONS (2)
  - Neuropathy peripheral [None]
  - Drug interaction [None]
